FAERS Safety Report 24386273 (Version 6)
Quarter: 2024Q4

REPORT INFORMATION
  Report Type: Spontaneous
  Country: US (occurrence: US)
  Receive Date: 20241001
  Receipt Date: 20241226
  Transmission Date: 20250114
  Serious: Yes (Death, Hospitalization)
  Sender: BOEHRINGER INGELHEIM
  Company Number: US-Komodo Health-a23aa000003U27VAAS

PATIENT
  Sex: Female

DRUGS (1)
  1. SPIRIVA [Suspect]
     Active Substance: TIOTROPIUM BROMIDE MONOHYDRATE
     Indication: Chronic obstructive pulmonary disease
     Dosage: 2 PUFFS
     Route: 055

REACTIONS (4)
  - Pneumothorax [Fatal]
  - Device ineffective [Unknown]
  - Product physical issue [Unknown]
  - Extra dose administered [Unknown]
